FAERS Safety Report 9842937 (Version 1)
Quarter: 2014Q1

REPORT INFORMATION
  Report Type: Spontaneous
  Country: US (occurrence: US)
  Receive Date: 20140124
  Receipt Date: 20140124
  Transmission Date: 20141002
  Serious: No
  Sender: FDA-Public Use
  Company Number: US-009507513-1401USA010776

PATIENT
  Age: 40 Year
  Sex: Male

DRUGS (2)
  1. IVEMEND [Suspect]
     Indication: ANTIEMETIC SUPPORTIVE CARE
     Dosage: 150 MG, UNK
     Route: 042
  2. DEXAMETHASONE [Concomitant]

REACTIONS (2)
  - Flushing [Recovered/Resolved]
  - Chest discomfort [Recovered/Resolved]
